FAERS Safety Report 7275665-X (Version None)
Quarter: 2011Q1

REPORT INFORMATION
  Report Type: 
  Country: None (occurrence: None)
  Receive Date: 20110204
  Receipt Date: 20101210
  Transmission Date: 20110831
  Serious: No
  Sender: FDA-Public Use
  Company Number: US-BAYER-2011-005869

PATIENT
  Sex: Female

DRUGS (1)
  1. ALEVE (CAPLET) [Suspect]
     Dosage: 1 DF, BID
     Route: 048
     Dates: start: 20101209

REACTIONS (2)
  - DRUG EFFECT DECREASED [None]
  - DRUG INEFFECTIVE [None]
